FAERS Safety Report 4465461-0 (Version None)
Quarter: 2004Q4

REPORT INFORMATION
  Report Type: 
  Country: None (occurrence: None)
  Receive Date: 20041001
  Receipt Date: 20040706
  Transmission Date: 20050328
  Serious: Yes (Death)
  Sender: FDA-Public Use
  Company Number: 8445

PATIENT
  Age: 92 Year
  Sex: Male

DRUGS (16)
  1. FAMOTIDINE [Suspect]
     Dosage: 20 MG BID
  2. GLYBURIDE [Concomitant]
  3. LISINOPRIL [Concomitant]
  4. FUROSEMIDE [Concomitant]
  5. COLACE [Concomitant]
  6. HYDROCODONE/ACETAMINOPHEN [Concomitant]
  7. ZOLPIDEM TARTRATE [Concomitant]
  8. VANCOMYCIN [Concomitant]
  9. TICARCILLIN/CLAVULANATE [Concomitant]
  10. ASPIRIN [Concomitant]
  11. HEPARIN [Concomitant]
  12. METOPROLOL [Concomitant]
  13. FENTANYL [Concomitant]
  14. MIDAZOLAM HCL [Concomitant]
  15. VITAMIN K TAB [Concomitant]
  16. INSULIN [Concomitant]

REACTIONS (7)
  - ACUTE MYOCARDIAL INFARCTION [None]
  - ELECTROCARDIOGRAM QT CORRECTED INTERVAL PROLONGED [None]
  - GENERAL PHYSICAL HEALTH DETERIORATION [None]
  - MULTI-ORGAN FAILURE [None]
  - RENAL FAILURE [None]
  - SEPSIS [None]
  - TORSADE DE POINTES [None]
